FAERS Safety Report 25869552 (Version 1)
Quarter: 2025Q3

REPORT INFORMATION
  Report Type: Spontaneous
  Country: US (occurrence: None)
  Receive Date: 20250930
  Receipt Date: 20250930
  Transmission Date: 20251021
  Serious: No
  Sender: FDA-CTU
  Company Number: None

PATIENT
  Age: 56 Year
  Sex: Female
  Weight: 96.3 kg

DRUGS (1)
  1. VENOFER [Suspect]
     Active Substance: IRON SUCROSE
     Indication: Iron deficiency anaemia
     Route: 042
     Dates: start: 20250930

REACTIONS (4)
  - Infusion site pruritus [None]
  - Induration [None]
  - Product after taste [None]
  - Blood pressure decreased [None]

NARRATIVE: CASE EVENT DATE: 20250930
